FAERS Safety Report 16453987 (Version 1)
Quarter: 2019Q2

REPORT INFORMATION
  Report Type: Report from Study
  Country: IN (occurrence: IN)
  Receive Date: 20190619
  Receipt Date: 20190619
  Transmission Date: 20190711
  Serious: Yes (Other)
  Sender: FDA-Public Use
  Company Number: PHHY2019IN139592

PATIENT
  Age: 59 Year
  Sex: Male

DRUGS (1)
  1. VYMADA [Suspect]
     Active Substance: SACUBITRIL\VALSARTAN
     Indication: CARDIAC FAILURE CHRONIC
     Dosage: 100 MG, (SACUBITRIL 49 MG/ VALSARTAN 51 MG) BID
     Route: 048
     Dates: start: 20190607

REACTIONS (2)
  - Blindness [Unknown]
  - Chest pain [Unknown]

NARRATIVE: CASE EVENT DATE: 20190607
